FAERS Safety Report 6572926-4 (Version None)
Quarter: 2010Q1

REPORT INFORMATION
  Report Type: 
  Country: None (occurrence: None)
  Receive Date: 20100208
  Receipt Date: 20100201
  Transmission Date: 20100710
  Serious: Yes (Death, Hospitalization)
  Sender: FDA-Public Use
  Company Number: US-BIOGENIDEC-2010BI001318

PATIENT
  Age: 42 Year
  Sex: Female
  Weight: 66 kg

DRUGS (1)
  1. TYSABRI [Suspect]
     Indication: NEUROMYELITIS OPTICA
     Route: 042
     Dates: start: 20090107, end: 20090924

REACTIONS (6)
  - NEUROMYELITIS OPTICA [None]
  - PNEUMONIA STAPHYLOCOCCAL [None]
  - RECTAL POLYP [None]
  - RESPIRATORY FAILURE [None]
  - URINARY TRACT INFECTION FUNGAL [None]
  - URINARY TRACT INFECTION PSEUDOMONAL [None]
